FAERS Safety Report 5746697-5 (Version None)
Quarter: 2008Q2

REPORT INFORMATION
  Report Type: 
  Country: None (occurrence: None)
  Receive Date: 20080520
  Receipt Date: 20080509
  Transmission Date: 20081010
  Serious: Yes (Death, Hospitalization)
  Sender: FDA-Public Use
  Company Number: 2008-01050

PATIENT
  Age: 69 Year
  Sex: Male
  Weight: 78 kg

DRUGS (2)
  1. VELCADE [Suspect]
     Indication: DRUG USE FOR UNKNOWN INDICATION
     Dosage: 2.6 MG, INTRAVENOUS
     Route: 042
     Dates: start: 20071129, end: 20080314
  2. CHLORAMBUCIL  (CHLORAMBUCIL) ORAL DRUG [Suspect]
     Indication: DRUG USE FOR UNKNOWN INDICATION
     Dosage: 10 MG, ORAL
     Route: 048
     Dates: start: 20071129, end: 20080316

REACTIONS (7)
  - GENERAL PHYSICAL HEALTH DETERIORATION [None]
  - INTERSTITIAL LUNG DISEASE [None]
  - MULTI-ORGAN FAILURE [None]
  - PNEUMONIA [None]
  - PULMONARY FIBROSIS [None]
  - PULMONARY TOXICITY [None]
  - RESPIRATORY DISTRESS [None]
